FAERS Safety Report 13387210 (Version 1)
Quarter: 2017Q1

REPORT INFORMATION
  Report Type: Spontaneous
  Country: US (occurrence: US)
  Receive Date: 20170330
  Receipt Date: 20170330
  Transmission Date: 20170429
  Serious: No
  Sender: FDA-Public Use
  Company Number: US-ELI_LILLY_AND_COMPANY-US201608002990

PATIENT
  Sex: Female

DRUGS (5)
  1. AMBIEN [Concomitant]
     Active Substance: ZOLPIDEM TARTRATE
     Dosage: 10 MG, EACH EVENING
     Route: 065
  2. OPANA [Concomitant]
     Active Substance: OXYMORPHONE HYDROCHLORIDE
     Dosage: 20 MG, BID
     Route: 065
  3. ZOLOFT [Concomitant]
     Active Substance: SERTRALINE HYDROCHLORIDE
     Dosage: 50 MG, QD
     Route: 065
  4. ZANAFLEX [Concomitant]
     Active Substance: TIZANIDINE HYDROCHLORIDE
     Dosage: 4 MG, TID
     Route: 065
  5. CYMBALTA [Suspect]
     Active Substance: DULOXETINE HYDROCHLORIDE
     Indication: PRODUCT USED FOR UNKNOWN INDICATION
     Dosage: UNK, UNKNOWN
     Route: 065

REACTIONS (15)
  - Affect lability [Unknown]
  - Drug withdrawal syndrome [Unknown]
  - Insomnia [Unknown]
  - Sensory disturbance [Unknown]
  - Diarrhoea [Unknown]
  - Hyperhidrosis [Unknown]
  - Lethargy [Unknown]
  - Tinnitus [Unknown]
  - Headache [Unknown]
  - Dysphoria [Unknown]
  - Hypomania [Unknown]
  - Agitation [Unknown]
  - Irritability [Unknown]
  - Paraesthesia [Unknown]
  - Confusional state [Unknown]
